FAERS Safety Report 4770602-1 (Version None)
Quarter: 2005Q3

REPORT INFORMATION
  Report Type: 
  Country: None (occurrence: None)
  Receive Date: 20050914
  Receipt Date: 20050902
  Transmission Date: 20060218
  Serious: Yes (Hospitalization)
  Sender: FDA-Public Use
  Company Number: 6016256

PATIENT
  Age: 23 Year
  Sex: Female

DRUGS (11)
  1. LEVOTHYROXINE SODIUM [Suspect]
     Dosage: 50 MCG (50 MCG, 1 IN 1 D) ORAL
     Route: 048
  2. RENAGEL [Suspect]
     Dosage: 6 DOSAGE FORMS (2 DOSAGE FORMS, 3 IN 1 D) ORAL
     Route: 048
  3. PEGASYS [Suspect]
     Indication: HEPATITIS C
     Dosage: 90 MCG (1 IN 1 WK) INTRAVENOUS
     Route: 042
     Dates: start: 20050104, end: 20050325
  4. COPEGUS [Suspect]
     Indication: HEPATITIS C
     Dosage: 200 MG (200 MG, 1 IN 1 D) ORAL
     Route: 048
     Dates: start: 20050104, end: 20050325
  5. OMEPRAZOLE [Suspect]
     Dosage: 20 MG (20 MG, 1 IN 1 D) ORAL
     Route: 048
  6. HYDROCORTISONE [Suspect]
     Dosage: 30 MG (30 MG, 1 IN 1 D) ORAL
     Route: 048
  7. KAYEXALATE (POWDER FOR ORAL SUSPENSION) (SODIUM POLYSTYRENE SULFONATE) [Concomitant]
  8. CLARYTINE (10 MG, TABLET) (LORATADINE) [Concomitant]
  9. DOLIPRANE (500 MG, TABLET) (PARACETAMOL) [Concomitant]
  10. SODIUM BICARBONATE (1 GRAM, CAPSULE) (SODIUM BICARBONATE) [Concomitant]
  11. ARANESP (SOLUTION FOR INJECTION) (DARBEPOETIN ALFA) [Concomitant]

REACTIONS (16)
  - BLOOD PRESSURE DIASTOLIC DECREASED [None]
  - CARDIAC MURMUR [None]
  - DYSPNOEA [None]
  - EAR INFECTION [None]
  - EFFUSION [None]
  - ENDOCARDITIS STAPHYLOCOCCAL [None]
  - EOSINOPHILIA [None]
  - EPISTAXIS [None]
  - HEPATITIS C [None]
  - ICHTHYOSIS [None]
  - INFLAMMATION [None]
  - LYMPHADENOPATHY [None]
  - LYMPHOPENIA [None]
  - MYCOSIS FUNGOIDES [None]
  - MYOCARDIAC ABSCESS [None]
  - PERICARDITIS [None]
